FAERS Safety Report 22283403 (Version 1)
Quarter: 2023Q2

REPORT INFORMATION
  Report Type: Spontaneous
  Country: US (occurrence: None)
  Receive Date: 20230503
  Receipt Date: 20230503
  Transmission Date: 20230722
  Serious: Yes (Other)
  Sender: FDA-Public Use
  Company Number: None

PATIENT
  Age: 64 Year
  Sex: Female
  Weight: 97.07 kg

DRUGS (19)
  1. ACTEMRA [Suspect]
     Active Substance: TOCILIZUMAB
     Indication: Product used for unknown indication
     Dates: start: 20230405, end: 20230405
  2. Hydroychloroquine [Concomitant]
  3. METHOTREXATE [Concomitant]
     Active Substance: METHOTREXATE
  4. VITAMINS [Concomitant]
     Active Substance: VITAMINS
  5. FISH OIL [Concomitant]
     Active Substance: FISH OIL
  6. UNSPECIFIED INGREDIENT [Concomitant]
     Active Substance: UNSPECIFIED INGREDIENT
  7. FOLIC ACID [Concomitant]
     Active Substance: FOLIC ACID
  8. VITAMIN D [Concomitant]
     Active Substance: VITAMIN D NOS
  9. Nitrofuranton Monohyd-/M-Cryst [Concomitant]
  10. OXYCODONE [Concomitant]
     Active Substance: OXYCODONE
  11. LEFLUNOMIDE [Concomitant]
     Active Substance: LEFLUNOMIDE
  12. ACETAMINOPHEN\OXYCODONE HYDROCHLORIDE [Concomitant]
     Active Substance: ACETAMINOPHEN\OXYCODONE HYDROCHLORIDE
  13. Hydrocodone-Acetam [Concomitant]
  14. CELEBREX [Concomitant]
     Active Substance: CELECOXIB
  15. MIDAZOLAM [Concomitant]
     Active Substance: MIDAZOLAM
  16. ADALIMUMAB [Concomitant]
     Active Substance: ADALIMUMAB
  17. TOCILIZUMAB [Concomitant]
     Active Substance: TOCILIZUMAB
  18. VERSED [Concomitant]
     Active Substance: MIDAZOLAM HYDROCHLORIDE
  19. Humeria [Concomitant]

REACTIONS (18)
  - Headache [None]
  - Dizziness [None]
  - Ocular icterus [None]
  - Pruritus [None]
  - Swollen tongue [None]
  - Glossodynia [None]
  - Vomiting [None]
  - Lethargy [None]
  - Dizziness [None]
  - Asthenia [None]
  - Peripheral swelling [None]
  - Oedema [None]
  - Illness [None]
  - Cough [None]
  - Sinusitis [None]
  - Confusional state [None]
  - Thinking abnormal [None]
  - Oedema peripheral [None]

NARRATIVE: CASE EVENT DATE: 20220405
